FAERS Safety Report 9465706 (Version 1)
Quarter: 2013Q3

REPORT INFORMATION
  Report Type: Report from Study
  Country: US (occurrence: US)
  Receive Date: 20130820
  Receipt Date: 20130820
  Transmission Date: 20140515
  Serious: Yes (Other)
  Sender: FDA-Public Use
  Company Number: US-JNJFOC-20130806487

PATIENT
  Sex: Female

DRUGS (1)
  1. REMICADE [Suspect]
     Indication: COLITIS ULCERATIVE
     Route: 042
     Dates: start: 2004

REACTIONS (6)
  - Groin abscess [Not Recovered/Not Resolved]
  - Impaired healing [Not Recovered/Not Resolved]
  - Immune system disorder [Unknown]
  - Constipation [Not Recovered/Not Resolved]
  - Rash pruritic [Not Recovered/Not Resolved]
  - Ear infection [Not Recovered/Not Resolved]
